FAERS Safety Report 17679040 (Version 9)
Quarter: 2021Q3

REPORT INFORMATION
  Report Type: Spontaneous
  Country: US (occurrence: US)
  Receive Date: 20200417
  Receipt Date: 20210929
  Transmission Date: 20211014
  Serious: No
  Sender: FDA-Public Use
  Company Number: US-BIOGEN-2019BI00684625

PATIENT
  Age: 64 Year
  Sex: Male

DRUGS (10)
  1. METFORMIN HCL [Concomitant]
     Active Substance: METFORMIN HYDROCHLORIDE
     Route: 065
  2. TECFIDERA [Suspect]
     Active Substance: DIMETHYL FUMARATE
     Dosage: TAKE 120MG CAPSULE BY MOUTH TWICE DAILY FOR 7 DAYS THEN TAKE 240MG TWICE DAILY THEREAFTER
     Route: 048
  3. TECFIDERA [Suspect]
     Active Substance: DIMETHYL FUMARATE
     Route: 048
     Dates: start: 20210305
  4. TECFIDERA [Suspect]
     Active Substance: DIMETHYL FUMARATE
     Dosage: TAKE 120MG CAPSULE BY MOUTH TWICE DAILY FOR 7 DAYS THEN TAKE 240MG TWICE DAILY THEREAFTER
     Route: 048
  5. SIMVASTATIN. [Concomitant]
     Active Substance: SIMVASTATIN
     Route: 065
  6. TECFIDERA [Suspect]
     Active Substance: DIMETHYL FUMARATE
     Indication: MULTIPLE SCLEROSIS
     Route: 050
     Dates: start: 20180918, end: 20191210
  7. TECFIDERA [Suspect]
     Active Substance: DIMETHYL FUMARATE
     Dosage: TAKE 120MG CAPSULE BY MOUTH TWICE DAILY FOR 7 DAYS THEN TAKE 240MG TWICE DAILY THEREAFTER
     Route: 048
  8. AMLODIPINE BESYLATE. [Concomitant]
     Active Substance: AMLODIPINE BESYLATE
     Route: 065
  9. LISINOPRIL. [Concomitant]
     Active Substance: LISINOPRIL
     Route: 065
  10. TECFIDERA [Suspect]
     Active Substance: DIMETHYL FUMARATE
     Dosage: TAKE 120MG CAPSULE BY MOUTH TWICE DAILY FOR 7 DAYS THEN TAKE 240MG TWICE DAILY THEREAFTER
     Route: 048

REACTIONS (6)
  - Flushing [Recovered/Resolved]
  - Product dose omission in error [Unknown]
  - Cognitive disorder [Unknown]
  - Pruritus [Unknown]
  - Mobility decreased [Not Recovered/Not Resolved]
  - Drug intolerance [Unknown]

NARRATIVE: CASE EVENT DATE: 20190114
